FAERS Safety Report 22698001 (Version 2)
Quarter: 2024Q2

REPORT INFORMATION
  Report Type: Report from Study
  Country: US (occurrence: US)
  Receive Date: 20230712
  Receipt Date: 20240509
  Transmission Date: 20240716
  Serious: Yes (Disabling, Other)
  Sender: FDA-Public Use
  Company Number: US-HORIZON THERAPEUTICS-HZN-2023-005172

PATIENT

DRUGS (5)
  1. TEPEZZA [Suspect]
     Active Substance: TEPROTUMUMAB-TRBW
     Indication: Endocrine ophthalmopathy
     Dosage: FIRST DOSE OF THE FIRST COURSE
     Route: 065
     Dates: start: 20220321
  2. TEPEZZA [Suspect]
     Active Substance: TEPROTUMUMAB-TRBW
     Dosage: FIRST DOSE OF SECOND COURSE
     Route: 065
     Dates: start: 20230503
  3. TEPEZZA [Suspect]
     Active Substance: TEPROTUMUMAB-TRBW
     Dosage: TREATMENT 3 / THIRD DOSE OF SECOND COURSE
     Route: 065
     Dates: start: 2023
  4. TEPEZZA [Suspect]
     Active Substance: TEPROTUMUMAB-TRBW
     Dosage: TREATMENT 4 / FOURTH DOSE OF SECOND COURSE
     Route: 065
     Dates: start: 2023
  5. UNSPECIFIED INGREDIENT [Concomitant]
     Active Substance: UNSPECIFIED INGREDIENT
     Indication: Product used for unknown indication

REACTIONS (15)
  - Diabetes mellitus [Unknown]
  - Disability [Not Recovered/Not Resolved]
  - Physical disability [Not Recovered/Not Resolved]
  - Deafness permanent [Not Recovered/Not Resolved]
  - Emotional distress [Not Recovered/Not Resolved]
  - Economic problem [Not Recovered/Not Resolved]
  - Impaired quality of life [Not Recovered/Not Resolved]
  - Concomitant disease aggravated [Not Recovered/Not Resolved]
  - Anxiety [Not Recovered/Not Resolved]
  - Discomfort [Not Recovered/Not Resolved]
  - Pain [Not Recovered/Not Resolved]
  - Injury [Not Recovered/Not Resolved]
  - Tinnitus [Not Recovered/Not Resolved]
  - Product quality issue [Unknown]
  - Off label use [Unknown]

NARRATIVE: CASE EVENT DATE: 20230101
